FAERS Safety Report 14757949 (Version 3)
Quarter: 2020Q3

REPORT INFORMATION
  Report Type: Spontaneous
  Country: US (occurrence: US)
  Receive Date: 20180413
  Receipt Date: 20200826
  Transmission Date: 20201102
  Serious: Yes (Hospitalization, Other)
  Sender: FDA-Public Use
  Company Number: US-ASTRAZENECA-2018SE44562

PATIENT
  Age: 23551 Day
  Sex: Male
  Weight: 111.8 kg

DRUGS (59)
  1. ONGLYZA [Suspect]
     Active Substance: SAXAGLIPTIN HYDROCHLORIDE
     Indication: DIABETES MELLITUS
     Route: 048
  2. ONGLYZA [Suspect]
     Active Substance: SAXAGLIPTIN HYDROCHLORIDE
     Indication: DIABETES MELLITUS
     Route: 048
     Dates: start: 20131115, end: 20131126
  3. DOXAZOSIN [Concomitant]
     Active Substance: DOXAZOSIN MESYLATE
  4. ALPRAZOLAM. [Concomitant]
     Active Substance: ALPRAZOLAM
  5. PRAVASTATIN. [Concomitant]
     Active Substance: PRAVASTATIN
  6. ROPINIROLE. [Concomitant]
     Active Substance: ROPINIROLE
  7. OMEGA 3 [Concomitant]
     Active Substance: OMEGA-3 FATTY ACIDS
  8. TEMAZEPAM. [Concomitant]
     Active Substance: TEMAZEPAM
  9. ZOLPIDEM [Concomitant]
     Active Substance: ZOLPIDEM TARTRATE
  10. ONGLYZA [Suspect]
     Active Substance: SAXAGLIPTIN HYDROCHLORIDE
     Indication: DIABETES MELLITUS
     Route: 048
     Dates: start: 2013, end: 2016
  11. ONGLYZA [Suspect]
     Active Substance: SAXAGLIPTIN HYDROCHLORIDE
     Indication: DIABETES MELLITUS
     Route: 048
     Dates: start: 20101210, end: 20131126
  12. GABAPENTIN. [Concomitant]
     Active Substance: GABAPENTIN
  13. ADVAIR DISKUS [Concomitant]
     Active Substance: FLUTICASONE PROPIONATE\SALMETEROL XINAFOATE
  14. GLYBURIDE?METFORMIN [Concomitant]
  15. ALLOPURINOL. [Concomitant]
     Active Substance: ALLOPURINOL
  16. BARBITURATES [Concomitant]
     Active Substance: UNSPECIFIED INGREDIENT
  17. VERAPAMIL [Concomitant]
     Active Substance: VERAPAMIL HYDROCHLORIDE
  18. BREO ELLIPTA [Concomitant]
     Active Substance: FLUTICASONE FUROATE\VILANTEROL TRIFENATATE
  19. FENOFIBRATE. [Concomitant]
     Active Substance: FENOFIBRATE
  20. METHADONE [Concomitant]
     Active Substance: METHADONE HYDROCHLORIDE
  21. PHENTERMINE. [Concomitant]
     Active Substance: PHENTERMINE
  22. OXAZEPAM. [Concomitant]
     Active Substance: OXAZEPAM
  23. KOMBIGLYZE XR [Suspect]
     Active Substance: METFORMIN HYDROCHLORIDE\SAXAGLIPTIN HYDROCHLORIDE
     Route: 048
     Dates: start: 2013
  24. INSULIN DETEMIR [Concomitant]
     Active Substance: INSULIN DETEMIR
  25. LEVOTHYROXINE SODIUM. [Concomitant]
     Active Substance: LEVOTHYROXINE SODIUM
  26. ATORVASTATIN CALCIUM. [Concomitant]
     Active Substance: ATORVASTATIN CALCIUM
  27. ATORVASTATIN [Concomitant]
     Active Substance: ATORVASTATIN
  28. VASCEPA [Concomitant]
     Active Substance: ICOSAPENT ETHYL
  29. SPIRIVA [Concomitant]
     Active Substance: TIOTROPIUM BROMIDE MONOHYDRATE
  30. METOLAZONE. [Concomitant]
     Active Substance: METOLAZONE
  31. ASPIRIN. [Concomitant]
     Active Substance: ASPIRIN
  32. NIACIN. [Concomitant]
     Active Substance: NIACIN
  33. INSULIN [Concomitant]
     Active Substance: INSULIN NOS
  34. INSULIN LISPRO [Concomitant]
     Active Substance: INSULIN LISPRO
  35. VITAMIN D3 [Concomitant]
     Active Substance: CHOLECALCIFEROL
  36. TANZEUM [Concomitant]
     Active Substance: ALBIGLUTIDE
  37. CLONAZEPAM. [Concomitant]
     Active Substance: CLONAZEPAM
  38. TIZANIDINE. [Concomitant]
     Active Substance: TIZANIDINE
  39. ALBUTEROL. [Concomitant]
     Active Substance: ALBUTEROL
  40. LISINOPRIL. [Concomitant]
     Active Substance: LISINOPRIL
  41. GABAPENTIN. [Concomitant]
     Active Substance: GABAPENTIN
  42. POTASSIUM CHLORIDE. [Concomitant]
     Active Substance: POTASSIUM CHLORIDE
  43. VERAPAMIL HCL [Concomitant]
     Active Substance: VERAPAMIL HYDROCHLORIDE
  44. CODEINE [Concomitant]
     Active Substance: CODEINE
  45. MORPHINE [Concomitant]
     Active Substance: MORPHINE
  46. OXYCODONE AND ACETAMINOPHEN [Concomitant]
     Active Substance: ACETAMINOPHEN\OXYCODONE HYDROCHLORIDE
  47. TAMSULOSIN [Concomitant]
     Active Substance: TAMSULOSIN
  48. TRADJENTA [Concomitant]
     Active Substance: LINAGLIPTIN
  49. AMITRIPTYLINE HCL [Concomitant]
     Active Substance: AMITRIPTYLINE
  50. PROPOXYPHENE. [Concomitant]
     Active Substance: PROPOXYPHENE
  51. CARISOPRODOL. [Concomitant]
     Active Substance: CARISOPRODOL
  52. GLIMEPIRIDE. [Concomitant]
     Active Substance: GLIMEPIRIDE
  53. FUROSEMIDE. [Concomitant]
     Active Substance: FUROSEMIDE
  54. LEVOTHYROXINE. [Concomitant]
     Active Substance: LEVOTHYROXINE
  55. INCRUSE ELLIPTA [Concomitant]
     Active Substance: UMECLIDINIUM BROMIDE
  56. TRULICITY [Concomitant]
     Active Substance: DULAGLUTIDE
  57. FENTANYL. [Concomitant]
     Active Substance: FENTANYL
  58. TAPENTADOL [Concomitant]
     Active Substance: TAPENTADOL
  59. DIAZEPAM. [Concomitant]
     Active Substance: DIAZEPAM

REACTIONS (5)
  - Cardiac failure [Unknown]
  - Cardiovascular disorder [Unknown]
  - Chronic left ventricular failure [Unknown]
  - Cardiac failure congestive [Unknown]
  - Myocardial infarction [Unknown]

NARRATIVE: CASE EVENT DATE: 20131122
